FAERS Safety Report 9639872 (Version 1)
Quarter: 2013Q4

REPORT INFORMATION
  Report Type: Spontaneous
  Country: US (occurrence: US)
  Receive Date: 20131023
  Receipt Date: 20131023
  Transmission Date: 20140711
  Serious: No
  Sender: FDA-Public Use
  Company Number: US-BAYER-2013-128522

PATIENT
  Age: 48 Year
  Sex: Male
  Weight: 79.37 kg

DRUGS (3)
  1. ALEVE CAPLET [Suspect]
     Indication: MUSCLE STRAIN
     Dosage: UNK
     Route: 048
     Dates: start: 20131018
  2. ALEVE CAPLET [Suspect]
     Indication: MUSCLE STRAIN
     Dosage: 3 DF, BID
     Route: 048
     Dates: start: 20131020, end: 20131020
  3. VICODIN [Concomitant]

REACTIONS (1)
  - Extra dose administered [None]
